FAERS Safety Report 17430566 (Version 1)
Quarter: 2020Q1

REPORT INFORMATION
  Report Type: Spontaneous
  Country: US (occurrence: US)
  Receive Date: 20200218
  Receipt Date: 20200218
  Transmission Date: 20200409
  Serious: No
  Sender: FDA-Public Use
  Company Number: US-VERTEX PHARMACEUTICALS-2020-002882

PATIENT
  Age: 12 Year
  Sex: Male
  Weight: 46 kg

DRUGS (1)
  1. TRIKAFTA [Suspect]
     Active Substance: ELEXACAFTOR\IVACAFTOR\TEZACAFTOR
     Indication: CYSTIC FIBROSIS
     Dosage: 2 ORANGE TABLETS IN AM AND 1 BLUE TABLET IN PM
     Route: 048
     Dates: start: 20200202

REACTIONS (4)
  - Headache [Unknown]
  - Dizziness [Unknown]
  - Abdominal pain upper [Unknown]
  - Sputum increased [Unknown]

NARRATIVE: CASE EVENT DATE: 202002
